FAERS Safety Report 25151893 (Version 2)
Quarter: 2025Q2

REPORT INFORMATION
  Report Type: Report from Study
  Country: FR (occurrence: FR)
  Receive Date: 20250402
  Receipt Date: 20250425
  Transmission Date: 20250717
  Serious: Yes (Death, Hospitalization)
  Sender: PFIZER
  Company Number: FR-PFIZER INC-PV202500038792

PATIENT
  Age: 73 Year
  Sex: Female
  Weight: 65 kg

DRUGS (4)
  1. ELRANATAMAB [Suspect]
     Active Substance: ELRANATAMAB
     Indication: Plasma cell myeloma
     Dosage: 76 MG, WEEKLY
     Route: 058
     Dates: start: 20250211, end: 20250223
  2. ELRANATAMAB [Suspect]
     Active Substance: ELRANATAMAB
     Dosage: 40 MG/ML FL 1 ML
     Route: 058
     Dates: start: 20250211
  3. ELRANATAMAB [Suspect]
     Active Substance: ELRANATAMAB
     Route: 058
     Dates: start: 20250214
  4. ELRANATAMAB [Suspect]
     Active Substance: ELRANATAMAB
     Route: 058
     Dates: start: 20250218

REACTIONS (1)
  - Parainfluenzae virus infection [Fatal]

NARRATIVE: CASE EVENT DATE: 20250328
